FAERS Safety Report 4540929-7 (Version None)
Quarter: 2004Q4

REPORT INFORMATION
  Report Type: 
  Country: None (occurrence: None)
  Receive Date: 20041228
  Receipt Date: 20041217
  Transmission Date: 20050328
  Serious: Yes (Hospitalization)
  Sender: FDA-Public Use
  Company Number: K200401935

PATIENT
  Age: 83 Year
  Sex: Male

DRUGS (5)
  1. ALTACE [Suspect]
     Dosage: 1.25 MG, BID, ORAL
     Route: 048
     Dates: start: 20040101, end: 20041105
  2. TRIVASTAL (PIRIBEDIL) TABLET, 1U [Suspect]
     Dosage: 1U, QD, ORAL
     Route: 048
     Dates: end: 20041105
  3. KARDEGIC (ACETYLSALICYLATE LYSINE) POWDER (EXCEPT [DPO], 1U [Suspect]
     Dosage: 1 U, QD, ORAL
     Route: 048
     Dates: end: 20041105
  4. ART (DIACEREIN) CAPSULE,  50MG [Suspect]
     Dosage: 50 MG, QD, ORAL
     Route: 048
     Dates: end: 20041105
  5. CHIBRO-PROSCAR (FINASTERIDE) TABLET [Concomitant]

REACTIONS (7)
  - ATRIOVENTRICULAR BLOCK FIRST DEGREE [None]
  - CONFUSIONAL STATE [None]
  - EPILEPSY [None]
  - HEMIPLEGIA [None]
  - HYPONATRAEMIA [None]
  - LOSS OF CONSCIOUSNESS [None]
  - MALAISE [None]
